FAERS Safety Report 20068847 (Version 1)
Quarter: 2021Q4

REPORT INFORMATION
  Report Type: Spontaneous
  Country: GB (occurrence: GB)
  Receive Date: 20211115
  Receipt Date: 20211115
  Transmission Date: 20220304
  Serious: Yes (Hospitalization)
  Sender: FDA-Public Use
  Company Number: GB-VERTEX PHARMACEUTICALS-2021-017648

PATIENT
  Sex: Male

DRUGS (1)
  1. IVACAFTOR\TEZACAFTOR [Suspect]
     Active Substance: IVACAFTOR\TEZACAFTOR
     Indication: Cystic fibrosis
     Dosage: 1 TABLET (TEZACAFTOR 50 MG/ IVACAFTOR 75 MG) DAILY
     Route: 048
     Dates: start: 202109

REACTIONS (1)
  - Bronchoscopy [Unknown]

NARRATIVE: CASE EVENT DATE: 20210101
